FAERS Safety Report 12953884 (Version 8)
Quarter: 2017Q2

REPORT INFORMATION
  Report Type: Spontaneous
  Country: US (occurrence: US)
  Receive Date: 20161118
  Receipt Date: 20170616
  Transmission Date: 20170830
  Serious: No
  Sender: FDA-Public Use
  Company Number: PHEH2016US030208

PATIENT
  Sex: Female
  Weight: 90.7 kg

DRUGS (1)
  1. ZOFRAN [Suspect]
     Active Substance: ONDANSETRON HYDROCHLORIDE
     Indication: VOMITING IN PREGNANCY
     Route: 048
     Dates: start: 200205, end: 20030203

REACTIONS (7)
  - Pain [Unknown]
  - Meconium stain [Unknown]
  - Injury [Unknown]
  - Product use in unapproved indication [Unknown]
  - Headache [Unknown]
  - Maternal exposure during pregnancy [Unknown]
  - Emotional distress [Unknown]
